FAERS Safety Report 24199649 (Version 8)
Quarter: 2025Q4

REPORT INFORMATION
  Report Type: Other
  Country: US (occurrence: US)
  Receive Date: 20240812
  Receipt Date: 20251231
  Transmission Date: 20260118
  Serious: No
  Sender: TRAVERE THERAPEUTICS
  Company Number: US-TRAVERE-2024TVT00669

PATIENT
  Age: 64 Year
  Sex: Female

DRUGS (2)
  1. FILSPARI [Suspect]
     Active Substance: SPARSENTAN
     Indication: IgA nephropathy
     Route: 048
     Dates: start: 20240608
  2. FILSPARI [Suspect]
     Active Substance: SPARSENTAN
     Route: 048
     Dates: start: 20240722

REACTIONS (3)
  - Nausea [Recovering/Resolving]
  - Urine abnormality [Recovered/Resolved]
  - Fatigue [None]
